APPROVED DRUG PRODUCT: OXAPROZIN
Active Ingredient: OXAPROZIN
Strength: 600MG
Dosage Form/Route: TABLET;ORAL
Application: A075848 | Product #001
Applicant: WATSON LABORATORIES
Approved: Feb 9, 2001 | RLD: No | RS: No | Type: DISCN